FAERS Safety Report 23558727 (Version 2)
Quarter: 2024Q1

REPORT INFORMATION
  Report Type: Spontaneous
  Country: BR (occurrence: BR)
  Receive Date: 20240223
  Receipt Date: 20240304
  Transmission Date: 20240410
  Serious: Yes (Other)
  Sender: FDA-Public Use
  Company Number: BR-009507513-2402BRA005797

PATIENT
  Age: 44 Year
  Sex: Male
  Weight: 98 kg

DRUGS (5)
  1. TEMODAL [Suspect]
     Active Substance: TEMOZOLOMIDE
     Indication: Glioblastoma multiforme
     Dosage: CAPSULES 20 MG AND 100 MG, TOTAL: 420 MG DURING 5 DAYS, WITH PAUSES BETWEEN 21 AND 28 DAYS
     Route: 048
     Dates: end: 202402
  2. TEMODAL [Suspect]
     Active Substance: TEMOZOLOMIDE
     Dosage: CAPSULES 100 MG, TOTAL: 420 MG DURING 5 DAYS, WITH PAUSES BETWEEN 21 AND 28 DAYS
     Route: 048
     Dates: end: 202402
  3. ILUDRAL [Concomitant]
     Indication: Seizure prophylaxis
     Dosage: EVERY 12 HOURS, 750 MG/DAY
  4. PHENYTOIN [Concomitant]
     Active Substance: PHENYTOIN
     Indication: Seizure prophylaxis
     Dosage: DAILY
  5. DEXAMETHASONE [Concomitant]
     Active Substance: DEXAMETHASONE
     Dosage: EVERY 12 HOURS

REACTIONS (9)
  - Glioblastoma [Unknown]
  - Recurrent cancer [Unknown]
  - Brain operation [Unknown]
  - Surgery [Unknown]
  - Radiotherapy [Unknown]
  - Drug ineffective [Unknown]
  - Blood pressure abnormal [Unknown]
  - Nausea [Unknown]
  - Product use issue [Unknown]

NARRATIVE: CASE EVENT DATE: 20240101
